FAERS Safety Report 7409455-1 (Version None)
Quarter: 2011Q2

REPORT INFORMATION
  Report Type: 
  Country: None (occurrence: None)
  Receive Date: 20110407
  Receipt Date: 20110407
  Transmission Date: 20111010
  Serious: Yes (Hospitalization)
  Sender: FDA-Public Use
  Company Number: None

PATIENT
  Age: 43 Year
  Sex: Male
  Weight: 109 kg

DRUGS (1)
  1. KETOCONAZOLE [Suspect]
     Indication: RASH
     Dosage: BID TOP
     Route: 061
     Dates: start: 20101229, end: 20110115

REACTIONS (4)
  - PRURITUS [None]
  - CONDITION AGGRAVATED [None]
  - RASH [None]
  - PERIORBITAL CELLULITIS [None]
